FAERS Safety Report 25010969 (Version 4)
Quarter: 2025Q4

REPORT INFORMATION
  Report Type: Spontaneous
  Country: JP (occurrence: JP)
  Receive Date: 20250225
  Receipt Date: 20251208
  Transmission Date: 20260117
  Serious: Yes (Life-Threatening, Hospitalization, Other)
  Sender: ASTELLAS
  Company Number: JP-ASTELLAS-2025-AER-010228

PATIENT
  Age: 64 Year
  Sex: Male

DRUGS (9)
  1. PADCEV [Suspect]
     Active Substance: ENFORTUMAB VEDOTIN-EJFV
     Indication: Transitional cell carcinoma
     Dosage: 2 DOSES 1 REST
     Route: 042
     Dates: start: 20250205
  2. KEYTRUDA [Suspect]
     Active Substance: PEMBROLIZUMAB
     Indication: Transitional cell carcinoma
     Dosage: 200 MG ONCE EVERY 3 WEEKS
     Route: 042
     Dates: start: 20250205
  3. GEMCITABINE HYDROCHLORIDE [Concomitant]
     Active Substance: GEMCITABINE HYDROCHLORIDE
     Indication: Product used for unknown indication
     Dosage: 2 CYCLES WERE ADMINISTERED
     Route: 065
  4. CISPLATIN [Concomitant]
     Active Substance: CISPLATIN
     Indication: Product used for unknown indication
     Dosage: 2 CYCLES WERE ADMINISTERED
     Route: 065
  5. NIVOLUMAB [Concomitant]
     Active Substance: NIVOLUMAB
     Indication: Product used for unknown indication
     Dosage: 6 CYCLES WERE ADMINISTERED
     Route: 065
  6. PIPERACILLIN SODIUM\TAZOBACTAM SODIUM [Concomitant]
     Active Substance: PIPERACILLIN SODIUM\TAZOBACTAM SODIUM
     Indication: Product used for unknown indication
     Route: 065
     Dates: start: 20250205
  7. PREDNISOLONE [Concomitant]
     Active Substance: PREDNISOLONE
     Indication: Pyrexia
     Dosage: LOW DOSE
     Route: 065
     Dates: start: 20250216
  8. CEFMETAZOLE [Concomitant]
     Active Substance: CEFMETAZOLE
     Indication: Urinary tract infection
     Route: 065
  9. CEFMETAZOLE [Concomitant]
     Active Substance: CEFMETAZOLE
     Indication: Gastrointestinal infection

REACTIONS (9)
  - Tumour lysis syndrome [Recovered/Resolved]
  - Hypotension [Unknown]
  - Respiratory failure [Unknown]
  - Pyrexia [Recovered/Resolved]
  - Immune system disorder [Unknown]
  - Renal impairment [Recovered/Resolved]
  - Hypophagia [Unknown]
  - Hyperphosphataemia [Unknown]
  - Hyperuricaemia [Recovering/Resolving]

NARRATIVE: CASE EVENT DATE: 20250201
